FAERS Safety Report 21156922 (Version 1)
Quarter: 2022Q3

REPORT INFORMATION
  Report Type: Spontaneous
  Country: US (occurrence: None)
  Receive Date: 20220730
  Receipt Date: 20220730
  Transmission Date: 20221026
  Serious: Yes (Other)
  Sender: FDA-Public Use
  Company Number: None

PATIENT
  Age: 71 Year
  Sex: Female

DRUGS (2)
  1. LAGEVRIO [Suspect]
     Active Substance: MOLNUPIRAVIR
     Indication: COVID-19
     Dates: start: 20220725, end: 20220727
  2. molnupiravir [Concomitant]

REACTIONS (2)
  - Tongue discolouration [None]
  - Tongue disorder [None]

NARRATIVE: CASE EVENT DATE: 20220727
